FAERS Safety Report 5698485-6 (Version None)
Quarter: 2008Q2

REPORT INFORMATION
  Report Type: 
  Country: None (occurrence: None)
  Receive Date: 20080408
  Receipt Date: 20060612
  Transmission Date: 20081010
  Serious: No
  Sender: FDA-Public Use
  Company Number: US-BAYER-US-2006-015435

PATIENT
  Age: 56 Year
  Sex: Female

DRUGS (3)
  1. CLIMARA [Suspect]
     Indication: HORMONE REPLACEMENT THERAPY
     Route: 062
     Dates: start: 20060301
  2. TOPAMAX [Concomitant]
     Indication: MIGRAINE
     Dosage: UNIT DOSE: 200 MG
     Route: 048
  3. AMITRIPTYLINE HCL [Concomitant]
     Indication: MIGRAINE
     Dosage: UNIT DOSE: 25 MG

REACTIONS (2)
  - ALOPECIA [None]
  - HAIR TEXTURE ABNORMAL [None]
